FAERS Safety Report 8339062-8 (Version None)
Quarter: 2012Q2

REPORT INFORMATION
  Report Type: 
  Country: None (occurrence: None)
  Receive Date: 20120502
  Receipt Date: 20120423
  Transmission Date: 20120825
  Serious: Yes (Hospitalization, Disabling, Other)
  Sender: FDA-Public Use
  Company Number: 2011MA002945

PATIENT
  Sex: Female
  Weight: 95.2554 kg

DRUGS (87)
  1. BEXTRA [Concomitant]
  2. CARBAMAZEPINE [Concomitant]
  3. CLARINEX [Concomitant]
  4. CLONAZEPAM [Concomitant]
  5. CYCLOBANZAPRINE [Concomitant]
  6. FLUOXETINE [Concomitant]
  7. GABAPENTIN [Concomitant]
  8. LIPITOR [Concomitant]
  9. TUSSIONEX [Concomitant]
  10. ATARAX [Concomitant]
  11. ESGIC [Concomitant]
  12. LYRICA [Concomitant]
  13. METFORMIN HCL [Concomitant]
  14. NEURONTIN [Concomitant]
  15. TRILEPTAL [Concomitant]
  16. VITAMIN B6 [Concomitant]
  17. ZOLOFT [Concomitant]
  18. ADVAIR DISKUS 100/50 [Concomitant]
  19. AMBIEN [Concomitant]
  20. CEFAZOLIN [Concomitant]
  21. CHROMAGEN [Concomitant]
  22. CHROMAGEN FORTE [Concomitant]
  23. COD LIVER [Concomitant]
  24. DEXAMETHASONE [Concomitant]
  25. EXCEDRIN (MIGRAINE) [Concomitant]
  26. IMITREX [Concomitant]
  27. METHACARBAMOL [Concomitant]
  28. PRILOSEC [Concomitant]
  29. SEROQUEL [Concomitant]
  30. SYMBICORT [Concomitant]
  31. TRAVATAN [Concomitant]
  32. ATENOLOL AND CHLORTHALIDONE [Concomitant]
  33. DEMEROL [Concomitant]
  34. DICLOFENAC POTASSIUM [Concomitant]
  35. KEPPRA [Concomitant]
  36. LEVOXYL [Concomitant]
  37. LIDODERM [Concomitant]
  38. MECLIZINE [Concomitant]
  39. NASACORT [Concomitant]
  40. SAVELLA [Concomitant]
  41. SYMTAN [Concomitant]
  42. TRAMADOL HYDROCHLORIDE [Concomitant]
  43. ZONEGRAN [Concomitant]
  44. ATENOLOL [Concomitant]
  45. CYMBALTA [Concomitant]
  46. DEPAKOTE [Concomitant]
  47. ELAVIL [Concomitant]
  48. HYDROCODONE BITARTRATE [Concomitant]
  49. IBUPROFEN [Concomitant]
  50. MAXALT [Concomitant]
  51. PROVENTIL [Concomitant]
  52. TIMOLOL MALEATE [Concomitant]
  53. ZOFRAN [Concomitant]
  54. METOCLOPRAMIDE [Suspect]
     Indication: HEADACHE
     Dosage: 10 MG;QID;PO
     Route: 048
     Dates: start: 20050624, end: 20091101
  55. METOCLOPRAMIDE [Suspect]
     Indication: NAUSEA
     Dosage: 10 MG;QID;PO
     Route: 048
     Dates: start: 20050624, end: 20091101
  56. ALBUTEROL [Concomitant]
  57. ERYTHROMYCIN [Concomitant]
  58. FLONASE [Concomitant]
  59. GUAIFENESIN [Concomitant]
  60. HYDROCODONE BITARTRATE + ACETAMINOPHEN [Concomitant]
  61. MICARDIS [Concomitant]
  62. PANTOPRAZOLE [Concomitant]
  63. PREVACID [Concomitant]
  64. PROTONIX [Concomitant]
  65. TOPAMAX [Concomitant]
  66. ANTIVERT [Concomitant]
  67. BIAXIN [Concomitant]
  68. COENZYME Q10 [Concomitant]
  69. DIAZEPAM [Concomitant]
  70. GLUCOPHAGE [Concomitant]
  71. IMDUR [Concomitant]
  72. KETOROLAC TROMETHAMINE [Concomitant]
  73. LORTAB [Concomitant]
  74. MEDROL [Concomitant]
  75. NAPROSYN [Concomitant]
  76. OMARIS [Concomitant]
  77. SINGULAIR [Concomitant]
  78. TRAZODONE HCL [Concomitant]
  79. CIPROFLOXACIN [Concomitant]
  80. CLINDAMYCIN [Concomitant]
  81. COREG [Concomitant]
  82. DARVOCET-N 100 [Concomitant]
  83. JOINT FLUID [Concomitant]
  84. METHYLPREDNISOLONE [Concomitant]
  85. PROMETHAZINE [Concomitant]
  86. PROZAC [Concomitant]
  87. VIMPAT [Concomitant]

REACTIONS (69)
  - CONSTIPATION [None]
  - HYPERTENSION [None]
  - EMOTIONAL DISORDER [None]
  - BACK PAIN [None]
  - MIGRAINE [None]
  - GLAUCOMA [None]
  - EPISTAXIS [None]
  - TENSION HEADACHE [None]
  - SCOLIOSIS [None]
  - NECK PAIN [None]
  - ASTHMA [None]
  - PARAESTHESIA [None]
  - GRIMACING [None]
  - EYE MOVEMENT DISORDER [None]
  - DUODENITIS [None]
  - EXTRAPYRAMIDAL DISORDER [None]
  - ECONOMIC PROBLEM [None]
  - FIBROMYALGIA [None]
  - DYSPEPSIA [None]
  - DEPRESSION [None]
  - INSOMNIA [None]
  - TARDIVE DYSKINESIA [None]
  - ARTHRALGIA [None]
  - RHEUMATOID ARTHRITIS [None]
  - DIZZINESS [None]
  - COUGH [None]
  - BLINDNESS TRANSIENT [None]
  - HYPOAESTHESIA [None]
  - MYELITIS [None]
  - ABNORMAL SENSATION IN EYE [None]
  - BURNING SENSATION [None]
  - DIPLOPIA [None]
  - JOINT RANGE OF MOTION DECREASED [None]
  - GAIT DISTURBANCE [None]
  - RADICULOPATHY [None]
  - HAEMOPTYSIS [None]
  - BIPOLAR DISORDER [None]
  - MUSCLE SPASMS [None]
  - TENDON DISORDER [None]
  - NAUSEA [None]
  - PNEUMONIA [None]
  - CARDIAC MURMUR [None]
  - TRANSIENT ISCHAEMIC ATTACK [None]
  - HYPOTHYROIDISM [None]
  - SPINAL PAIN [None]
  - HEADACHE [None]
  - RADICULITIS [None]
  - SNORING [None]
  - EXCESSIVE EYE BLINKING [None]
  - VOMITING [None]
  - ASTHENIA [None]
  - BRONCHITIS [None]
  - COSTOCHONDRITIS [None]
  - CHEST PAIN [None]
  - DIABETIC NEUROPATHY [None]
  - CATARACT [None]
  - DYSKINESIA [None]
  - MOTION SICKNESS [None]
  - BLOOD IRON DECREASED [None]
  - SOMNOLENCE [None]
  - PLANTAR FASCIITIS [None]
  - PALPITATIONS [None]
  - MENTAL STATUS CHANGES [None]
  - PAIN IN EXTREMITY [None]
  - OESOPHAGITIS [None]
  - SINUS HEADACHE [None]
  - VERTIGO [None]
  - FATIGUE [None]
  - GASTROOESOPHAGEAL REFLUX DISEASE [None]
